FAERS Safety Report 17023982 (Version 3)
Quarter: 2020Q2

REPORT INFORMATION
  Report Type: Spontaneous
  Country: JP (occurrence: JP)
  Receive Date: 20191113
  Receipt Date: 20200428
  Transmission Date: 20200713
  Serious: Yes (Hospitalization, Other)
  Sender: FDA-Public Use
  Company Number: JP-TAKEDA-2019TJP025977

PATIENT
  Age: 68 Year
  Sex: Male
  Weight: 58 kg

DRUGS (11)
  1. OLOPATADINE HYDROCHLORIDE. [Concomitant]
     Active Substance: OLOPATADINE HYDROCHLORIDE
     Dosage: 5 MILLIGRAM, QD
     Route: 048
  2. K-SUPPLY [Concomitant]
     Active Substance: POTASSIUM CHLORIDE
     Indication: PRODUCT USED FOR UNKNOWN INDICATION
     Dosage: 600 MILLIGRAM, QD
     Route: 048
     Dates: start: 20180806
  3. METHYCOBAL [Concomitant]
     Active Substance: METHYLCOBALAMIN
     Indication: PRODUCT USED FOR UNKNOWN INDICATION
     Dosage: 500 MICROGRAM, QD
     Route: 048
     Dates: start: 20180810
  4. ENTYVIO [Suspect]
     Active Substance: VEDOLIZUMAB
     Indication: COLITIS ULCERATIVE
     Dosage: 300 MILLIGRAM
     Route: 041
     Dates: start: 20190426
  5. FAMOTIDINE. [Concomitant]
     Active Substance: FAMOTIDINE
     Indication: GASTRITIS
     Dosage: 20 MILLIGRAM, QD
     Route: 048
     Dates: start: 20180724
  6. LIALDA [Concomitant]
     Active Substance: MESALAMINE
     Indication: COLITIS ULCERATIVE
     Dosage: 4800 MILLIGRAM, QD
     Route: 048
     Dates: start: 20180913
  7. NIFEDIPINE. [Concomitant]
     Active Substance: NIFEDIPINE
     Indication: BLOOD PRESSURE INCREASED
     Dosage: 20 MILLIGRAM, QD
     Route: 048
     Dates: start: 20191007
  8. ITRIZOLE [Concomitant]
     Active Substance: ITRACONAZOLE
     Indication: BRONCHOPULMONARY ASPERGILLOSIS
     Dosage: 200 MILLIGRAM, QD
     Route: 048
     Dates: start: 20190610
  9. MIYA-BM [Concomitant]
     Active Substance: CLOSTRIDIUM BUTYRICUM SPORES STRAIN M-55
     Indication: COLITIS ULCERATIVE
     Dosage: 2 DOSAGE FORM, QD
     Route: 048
     Dates: start: 20180724
  10. VALSARTAN. [Concomitant]
     Active Substance: VALSARTAN
     Indication: BLOOD PRESSURE INCREASED
     Dosage: 80 MILLIGRAM, QD
     Route: 048
     Dates: start: 20180724
  11. BUDESONIDE. [Concomitant]
     Active Substance: BUDESONIDE
     Indication: COLITIS ULCERATIVE
     Dosage: UNK UNK, BID
     Route: 054
     Dates: start: 20190705, end: 20191025

REACTIONS (3)
  - Pneumonia [Recovering/Resolving]
  - Colitis ulcerative [Unknown]
  - Pneumonia cytomegaloviral [Unknown]

NARRATIVE: CASE EVENT DATE: 20191025
